FAERS Safety Report 10283872 (Version 1)
Quarter: 2014Q3

REPORT INFORMATION
  Report Type: Spontaneous
  Country: IN (occurrence: None)
  Receive Date: 20140703
  Receipt Date: 20140703
  Transmission Date: 20150326
  Serious: Yes (Congenital Anomaly)
  Sender: FDA-Public Use
  Company Number: FFK201402557

PATIENT
  Age: 4 Year
  Sex: Male

DRUGS (2)
  1. FOLIC ACID (FOLIC ACID) [Concomitant]
     Active Substance: FOLIC ACID
  2. VALPROATE SODIUM. [Suspect]
     Active Substance: VALPROATE SODIUM
     Indication: EPILEPSY
     Route: 064

REACTIONS (10)
  - Maternal drugs affecting foetus [None]
  - Anisometropia [None]
  - Hypotelorism of orbit [None]
  - High arched palate [None]
  - Foetal anticonvulsant syndrome [None]
  - Dysmorphism [None]
  - Developmental delay [None]
  - Microstomia [None]
  - Coloboma [None]
  - Astigmatism [None]
